FAERS Safety Report 6827580-0 (Version None)
Quarter: 2010Q3

REPORT INFORMATION
  Report Type: 
  Country: None (occurrence: None)
  Receive Date: 20100709
  Receipt Date: 20070126
  Transmission Date: 20110219
  Serious: No
  Sender: FDA-Public Use
  Company Number: US-PFIZER INC-2007006341

PATIENT
  Sex: Female
  Weight: 71.21 kg

DRUGS (3)
  1. CHANTIX [Suspect]
     Indication: EX-TOBACCO USER
     Route: 048
     Dates: start: 20070114
  2. XANAX [Suspect]
     Indication: ANXIETY
  3. ALBUTEROL [Concomitant]
     Indication: DYSPNOEA

REACTIONS (1)
  - ANXIETY [None]
